FAERS Safety Report 6073155-3 (Version None)
Quarter: 2009Q1

REPORT INFORMATION
  Report Type: 
  Country: None (occurrence: None)
  Receive Date: 20090211
  Receipt Date: 20090202
  Transmission Date: 20090719
  Serious: Yes (Other)
  Sender: FDA-Public Use
  Company Number: GR-AMGEN-UK327550

PATIENT

DRUGS (3)
  1. KINERET [Suspect]
     Indication: RHEUMATOID ARTHRITIS
     Route: 058
  2. RITUXIMAB [Concomitant]
  3. INFLIXIMAB [Concomitant]

REACTIONS (1)
  - HYPERSENSITIVITY [None]
